FAERS Safety Report 5158982-9 (Version None)
Quarter: 2006Q4

REPORT INFORMATION
  Report Type: 
  Country: None (occurrence: None)
  Receive Date: 20061117
  Receipt Date: 20061102
  Transmission Date: 20070319
  Serious: Yes (Hospitalization)
  Sender: FDA-Public Use
  Company Number: 15133

PATIENT
  Age: 74 Year
  Sex: Male
  Weight: 93.441 kg

DRUGS (15)
  1. FLUOROURACIL [Suspect]
     Indication: CARCINOID TUMOUR
     Dosage: 4800 MG PER_CYCLE IV
     Route: 042
     Dates: start: 20060717, end: 20060927
  2. FLUOROURACIL [Suspect]
     Indication: NEUROENDOCRINE TUMOUR
     Dosage: 4800 MG PER_CYCLE IV
     Route: 042
     Dates: start: 20060717, end: 20060927
  3. OXALIPLATIN [Suspect]
     Indication: CARCINOID TUMOUR
     Dosage: 170 MG PER_CYCLE IV
     Route: 042
     Dates: start: 20060712, end: 20060927
  4. OXALIPLATIN [Suspect]
     Indication: NEUROENDOCRINE TUMOUR
     Dosage: 170 MG PER_CYCLE IV
     Route: 042
     Dates: start: 20060712, end: 20060927
  5. OCTREOTIDE ACETATE [Concomitant]
  6. FUROSEMIDE [Concomitant]
  7. ACYCLOVIR [Concomitant]
  8. LEUCOVORIN CALCIUM [Suspect]
     Indication: CARCINOID TUMOUR
     Dosage: 400 MG PER_CYCLE_IV
     Route: 042
     Dates: start: 20060712, end: 20060927
  9. LEUCOVORIN CALCIUM [Suspect]
     Indication: NEUROENDOCRINE TUMOUR
     Dosage: 400 MG PER_CYCLE_IV
     Route: 042
     Dates: start: 20060712, end: 20060927
  10. BEVACIZUMAB [Suspect]
     Indication: CARCINOID TUMOUR
     Dosage: 435 MG PER_CYCLE IV
     Route: 042
     Dates: start: 20060712, end: 20060927
  11. BEVACIZUMAB [Suspect]
     Indication: NEUROENDOCRINE TUMOUR
     Dosage: 435 MG PER_CYCLE IV
     Route: 042
     Dates: start: 20060712, end: 20060927
  12. SPIRONOLACTONE [Concomitant]
  13. DARBEPOETIN ALFA [Concomitant]
  14. LOPERAMIDE [Concomitant]
  15. DIPHENOXYLATE W/ATROPINE SULFATE [Concomitant]

REACTIONS (1)
  - ANAEMIA [None]
